FAERS Safety Report 16954666 (Version 4)
Quarter: 2020Q1

REPORT INFORMATION
  Report Type: Report from Study
  Country: CO (occurrence: CO)
  Receive Date: 20191024
  Receipt Date: 20200117
  Transmission Date: 20200409
  Serious: Yes (Death, Hospitalization)
  Sender: FDA-Public Use
  Company Number: NVSC2019CO012563

PATIENT
  Age: 53 Year
  Sex: Female
  Weight: 60 kg

DRUGS (3)
  1. KISQALI [Suspect]
     Active Substance: RIBOCICLIB
     Indication: BREAST CANCER METASTATIC
     Dosage: 600 MG, QD
     Route: 048
     Dates: start: 201910, end: 201910
  2. FEMARA [Suspect]
     Active Substance: LETROZOLE
     Indication: BREAST CANCER
     Dosage: 2.5 MG, QD
     Route: 048
     Dates: start: 201910, end: 201910
  3. CALCIUM [Concomitant]
     Active Substance: CALCIUM
     Indication: BONE DISORDER
     Dosage: UNK, QD
     Route: 048

REACTIONS (10)
  - Metastases to central nervous system [Unknown]
  - Bedridden [Unknown]
  - Vomiting [Unknown]
  - Death [Fatal]
  - Muscle disorder [Unknown]
  - Dyspnoea [Not Recovered/Not Resolved]
  - Metastases to spinal cord [Unknown]
  - Cough [Unknown]
  - Malaise [Not Recovered/Not Resolved]
  - Pain [Unknown]

NARRATIVE: CASE EVENT DATE: 201910
